FAERS Safety Report 8746226 (Version 2)
Quarter: 2012Q4

REPORT INFORMATION
  Report Type: Report from Study
  Country: RU (occurrence: RU)
  Receive Date: 20120827
  Receipt Date: 20121003
  Transmission Date: 20130627
  Serious: Yes (Hospitalization)
  Sender: FDA-Public Use
  Company Number: RU-NOVOPROD-358224

PATIENT
  Age: 47 Year
  Sex: Female
  Weight: 157.7 kg

DRUGS (7)
  1. LIRAGLUTIDE FLEXPEN [Suspect]
     Indication: OBESITY
     Dosage: 0.6 mg, qd
     Route: 058
     Dates: start: 20110927
  2. LIRAGLUTIDE FLEXPEN [Suspect]
     Dosage: 3.0 mg, qd
     Route: 058
     Dates: start: 20111030, end: 20120806
  3. LIRAGLUTIDE FLEXPEN [Suspect]
     Dosage: 3.0 mg, qd
     Route: 058
     Dates: start: 20120817
  4. CAPTOPRIL [Concomitant]
     Indication: HYPERTENSION
     Dosage: 50 mg, qd
     Dates: start: 2010, end: 20111019
  5. HYDROCHLOROTHIAZID [Concomitant]
     Indication: HYPERTENSION
     Dosage: 25 mg, qd
     Dates: start: 2010, end: 20111219
  6. L-THYROXIN [Concomitant]
     Indication: HYPOTHYROIDISM
     Dosage: 125 mg, qd
     Dates: start: 200711, end: 20120817
  7. L-THYROXIN [Concomitant]
     Dosage: 150 mg, qd
     Dates: start: 20120818

REACTIONS (1)
  - Cholecystitis acute [Recovered/Resolved]
